FAERS Safety Report 23445492 (Version 3)
Quarter: 2024Q1

REPORT INFORMATION
  Report Type: Spontaneous
  Country: US (occurrence: US)
  Receive Date: 20240126
  Receipt Date: 20240202
  Transmission Date: 20240410
  Serious: Yes (Hospitalization, Other)
  Sender: FDA-Public Use
  Company Number: US-SANDOZ-SDZ2024US008049

PATIENT
  Sex: Female

DRUGS (4)
  1. CAPTOPRIL [Suspect]
     Active Substance: CAPTOPRIL
     Indication: Product used for unknown indication
     Dosage: 100 MG, BID
     Route: 065
  2. CAPTOPRIL [Suspect]
     Active Substance: CAPTOPRIL
     Indication: Product used for unknown indication
     Route: 065
  3. DIAZEPAM [Suspect]
     Active Substance: DIAZEPAM
     Indication: Product used for unknown indication
     Dosage: 3 MG, QD
     Route: 065
  4. LISINOPRIL [Suspect]
     Active Substance: LISINOPRIL
     Indication: Product used for unknown indication
     Dosage: UNK
     Route: 065

REACTIONS (10)
  - Drug dependence [Unknown]
  - Migraine [Unknown]
  - Anxiety [Unknown]
  - Feeling abnormal [Unknown]
  - Palpitations [Unknown]
  - Drug ineffective [Unknown]
  - Post-traumatic stress disorder [Unknown]
  - Nightmare [Unknown]
  - Agoraphobia [Unknown]
  - Malaise [Unknown]
